FAERS Safety Report 13990288 (Version 3)
Quarter: 2020Q1

REPORT INFORMATION
  Report Type: Spontaneous
  Country: US (occurrence: US)
  Receive Date: 20170920
  Receipt Date: 20200322
  Transmission Date: 20200409
  Serious: Yes (Other)
  Sender: FDA-Public Use
  Company Number: US-BRISTOL-MYERS SQUIBB COMPANY-BMS-2017-082003

PATIENT
  Sex: Female
  Weight: 73.92 kg

DRUGS (2)
  1. YERVOY [Suspect]
     Active Substance: IPILIMUMAB
     Indication: ACUTE MYELOID LEUKAEMIA
     Dosage: 10 MG/KG, Q3WK
     Route: 042
     Dates: start: 201706
  2. YERVOY [Suspect]
     Active Substance: IPILIMUMAB
     Indication: PRODUCT USED FOR UNKNOWN INDICATION
     Dosage: 750 MG, UNK
     Route: 042

REACTIONS (13)
  - Cough [Unknown]
  - Tremor [Unknown]
  - Diarrhoea [Unknown]
  - Intentional product use issue [Unknown]
  - Alanine aminotransferase increased [Unknown]
  - Eye pain [Unknown]
  - Fatigue [Unknown]
  - Asthenia [Unknown]
  - Dry eye [Unknown]
  - Lacrimation increased [Unknown]
  - Blood potassium decreased [Unknown]
  - Pruritus [Unknown]
  - Ocular hyperaemia [Unknown]
